FAERS Safety Report 8394358-9 (Version None)
Quarter: 2012Q2

REPORT INFORMATION
  Report Type: 
  Country: None (occurrence: None)
  Receive Date: 20120530
  Receipt Date: 20120522
  Transmission Date: 20120825
  Serious: Yes (Hospitalization, Other)
  Sender: FDA-Public Use
  Company Number: US-BAYER-2011-053158

PATIENT
  Age: 49 Year
  Sex: Female
  Weight: 82 kg

DRUGS (9)
  1. OXYCODONE HCL [Concomitant]
  2. SYNTHROID [Concomitant]
  3. STOOL SOFTENER [Concomitant]
  4. LEVOTHROID [Concomitant]
  5. ZOLOFT [Concomitant]
  6. YAZ [Suspect]
     Indication: MENSTRUATION IRREGULAR
  7. YAZ [Suspect]
     Indication: ORAL CONTRACEPTION
     Dosage: UNK
     Dates: start: 20080501, end: 20100301
  8. YAZ [Suspect]
     Indication: PREMENSTRUAL SYNDROME
  9. PHENERGAN [Concomitant]

REACTIONS (7)
  - CHOLECYSTITIS CHRONIC [None]
  - ABDOMINAL PAIN UPPER [None]
  - GALLBLADDER INJURY [None]
  - BILIARY DILATATION [None]
  - CHOLELITHIASIS [None]
  - PAIN [None]
  - INJURY [None]
